FAERS Safety Report 8346747-6 (Version None)
Quarter: 2012Q2

REPORT INFORMATION
  Report Type: 
  Country: None (occurrence: None)
  Receive Date: 20120509
  Receipt Date: 20120501
  Transmission Date: 20120825
  Serious: Yes (Other)
  Sender: FDA-Public Use
  Company Number: US-BAYER-2012-042795

PATIENT
  Sex: Female

DRUGS (2)
  1. MIRENA [Suspect]
     Indication: MENORRHAGIA
     Dosage: 20 MCG/24HR, CONT
     Route: 015
  2. MIRENA [Suspect]
     Dosage: 20 MCG/24HR, CONT

REACTIONS (5)
  - URINARY TRACT INFECTION [None]
  - VULVOVAGINAL DISCOMFORT [None]
  - VAGINAL OEDEMA [None]
  - PROCEDURAL PAIN [None]
  - POLYMENORRHOEA [None]
